FAERS Safety Report 15725412 (Version 2)
Quarter: 2019Q1

REPORT INFORMATION
  Report Type: Spontaneous
  Country: GB (occurrence: GB)
  Receive Date: 20181215
  Receipt Date: 20190121
  Transmission Date: 20190417
  Serious: Yes (Hospitalization, Other)
  Sender: FDA-Public Use
  Company Number: GB-AUROBINDO-AUR-APL-2018-059476

PATIENT
  Age: 75 Year
  Sex: Male

DRUGS (6)
  1. RASAGILINE. [Suspect]
     Active Substance: RASAGILINE
     Indication: PARKINSON^S DISEASE
     Dosage: 1 MILLIGRAM, DAILY
     Route: 065
  2. STALEVO [Suspect]
     Active Substance: CARBIDOPA\ENTACAPONE\LEVODOPA
     Indication: PARKINSON^S DISEASE
     Dosage: 1 DOSAGE FORM EVERY 8 HOURS
     Route: 065
  3. PRAMIPEXOLE. [Suspect]
     Active Substance: PRAMIPEXOLE
     Indication: PARKINSON^S DISEASE
     Dosage: 2.62 MILLIGRAM, DAILY, MODIFIED RELEASE (DOPAMINE AGONIST)
     Route: 065
  4. ATROPINE. [Suspect]
     Active Substance: ATROPINE
     Indication: DROOLING
     Dosage: 0.5 MILLILITER, DAILY
     Route: 060
  5. ATROPINE. [Suspect]
     Active Substance: ATROPINE
     Indication: SALIVARY HYPERSECRETION
  6. STALEVO [Suspect]
     Active Substance: CARBIDOPA\ENTACAPONE\LEVODOPA
     Dosage: 1 DOSAGE FORM EVERY 8 HOURS
     Route: 065

REACTIONS (9)
  - Psychotic disorder [Recovered/Resolved]
  - Road traffic accident [Recovered/Resolved]
  - Condition aggravated [Recovered/Resolved]
  - Dysarthria [Recovered/Resolved]
  - Off label use [Unknown]
  - Gait disturbance [Recovered/Resolved]
  - Fall [Recovered/Resolved]
  - Product use issue [Unknown]
  - Delirium [Recovered/Resolved]
